FAERS Safety Report 25352722 (Version 1)
Quarter: 2025Q2

REPORT INFORMATION
  Report Type: Spontaneous
  Country: US (occurrence: None)
  Receive Date: 20250523
  Receipt Date: 20250523
  Transmission Date: 20250716
  Serious: Yes (Disabling)
  Sender: FDA-CTU
  Company Number: None

PATIENT
  Age: 52 Year
  Sex: Female
  Weight: 81 kg

DRUGS (12)
  1. TOPIRAMATE [Suspect]
     Active Substance: TOPIRAMATE
     Indication: Weight decreased
     Route: 048
  2. HYDROCHLOROTHIAZIDE [Concomitant]
     Active Substance: HYDROCHLOROTHIAZIDE
  3. CELECOXIB [Concomitant]
     Active Substance: CELECOXIB
  4. DULOXETINE [Concomitant]
     Active Substance: DULOXETINE
  5. GABAPENTIN [Concomitant]
     Active Substance: GABAPENTIN
  6. LOSARTAN [Concomitant]
     Active Substance: LOSARTAN
  7. HERBALS [Concomitant]
     Active Substance: HERBALS
  8. metylcellulose [Concomitant]
  9. EVENING PRIMROSE OIL\HERBALS [Concomitant]
     Active Substance: EVENING PRIMROSE OIL\HERBALS
  10. KRILL OIL [Concomitant]
     Active Substance: DIETARY SUPPLEMENT\KRILL OIL
  11. women^s multivitamin [Concomitant]
  12. PROBIOTICS NOS [Concomitant]
     Active Substance: PROBIOTICS NOS

REACTIONS (6)
  - Arthralgia [None]
  - Malaise [None]
  - Fatigue [None]
  - Fibromyalgia [None]
  - Therapy interrupted [None]
  - Nonspecific reaction [None]
